FAERS Safety Report 13359063 (Version 1)
Quarter: 2017Q1

REPORT INFORMATION
  Report Type: Report from Study
  Country: BR (occurrence: BR)
  Receive Date: 20170322
  Receipt Date: 20170322
  Transmission Date: 20170429
  Serious: Yes (Other)
  Sender: FDA-Public Use
  Company Number: BR-ALEXION-A201702634

PATIENT
  Age: 13 Year
  Sex: Male

DRUGS (2)
  1. SOLIRIS [Suspect]
     Active Substance: ECULIZUMAB
     Dosage: 1200 MG, UNK
     Route: 042
     Dates: start: 20150220
  2. SOLIRIS [Suspect]
     Active Substance: ECULIZUMAB
     Indication: HAEMOLYTIC URAEMIC SYNDROME
     Dosage: 600 MG, UNK
     Route: 042
     Dates: start: 20150206, end: 20150213

REACTIONS (7)
  - Peripheral swelling [Not Recovered/Not Resolved]
  - Proteinuria [Unknown]
  - Drug dose omission [Unknown]
  - Erythema [Unknown]
  - Haematuria [Unknown]
  - Renal disorder [Unknown]
  - Urine abnormality [Unknown]

NARRATIVE: CASE EVENT DATE: 20170221
